FAERS Safety Report 8192768-6 (Version None)
Quarter: 2012Q1

REPORT INFORMATION
  Report Type: 
  Country: None (occurrence: None)
  Receive Date: 20120308
  Receipt Date: 20120305
  Transmission Date: 20120608
  Serious: No
  Sender: FDA-Public Use
  Company Number: US-PFIZER INC-2012020235

PATIENT
  Sex: Female

DRUGS (4)
  1. GEODON [Suspect]
     Dosage: 80 MG, 2X/DAY
     Route: 048
  2. COREG [Concomitant]
     Dosage: 3.125 MG, UNK
     Dates: start: 20100616
  3. RAMIPRIL [Concomitant]
     Dosage: 1.25 MG, UNK
     Dates: start: 20100616
  4. VALIUM [Concomitant]
     Dosage: 5 MG, AS NEEDED

REACTIONS (1)
  - DEPRESSION [None]
